FAERS Safety Report 8320693-6 (Version None)
Quarter: 2012Q2

REPORT INFORMATION
  Report Type: 
  Country: None (occurrence: None)
  Receive Date: 20120430
  Receipt Date: 20120425
  Transmission Date: 20120825
  Serious: Yes (Other)
  Sender: FDA-Public Use
  Company Number: US-AMGEN-USASP2011010155

PATIENT
  Sex: Female

DRUGS (45)
  1. SEROQUEL [Concomitant]
     Dosage: UNK
  2. HYDROCHLOROTHIAZIDE [Concomitant]
     Dosage: UNK
  3. PREDNISONE [Concomitant]
     Dosage: 5 MG, QD
     Route: 048
  4. ALAVERT [Concomitant]
     Dosage: UNK
  5. ALENDRONATE SODIUM [Concomitant]
     Dosage: UNK
  6. IMURAN [Concomitant]
     Dosage: 75 MG, BID
  7. ZOVIRAX                            /00587301/ [Concomitant]
     Dosage: UNK
  8. HYDROCODONE [Concomitant]
     Dosage: UNK
  9. LANSOPRAZOLE [Concomitant]
     Dosage: UNK
  10. LEVOTHYROXINE SODIUM [Concomitant]
     Dosage: UNK
  11. ASPIRIN [Concomitant]
     Dosage: UNK
  12. DESOXIMETASONE [Concomitant]
     Dosage: UNK
  13. ENBREL [Suspect]
     Indication: PSORIASIS
  14. LYRICA [Concomitant]
     Dosage: UNK
  15. CALCIUM + VIT D [Concomitant]
     Dosage: UNK
  16. PANTOPRAZOLE [Concomitant]
  17. PATANASE [Concomitant]
  18. LORATADINE [Concomitant]
  19. ENBREL [Suspect]
     Indication: SYSTEMIC LUPUS ERYTHEMATOSUS
  20. FENTANYL-100 [Concomitant]
     Dosage: UNK
  21. PROPRANOLOL [Concomitant]
     Dosage: UNK
  22. TEKTURNA [Concomitant]
     Dosage: UNK
  23. VAGIFEM [Concomitant]
     Dosage: UNK
  24. CYCLOBENZAPRINE [Concomitant]
     Dosage: UNK
  25. KETOROLAC TROMETHAMINE [Concomitant]
     Dosage: UNK
  26. METOCLOPRAMIDE [Concomitant]
     Dosage: UNK
  27. FOLIC ACID [Concomitant]
     Dosage: 1 MG, QD
     Route: 048
  28. B12                                /00056201/ [Concomitant]
     Dosage: UNK
  29. ALPRAZOLAM [Concomitant]
     Dosage: UNK
  30. ALCLOMETASONE [Concomitant]
     Dosage: UNK
  31. FLUOCINONIDE [Concomitant]
     Dosage: UNK
  32. IMURAN [Concomitant]
     Dosage: 50 MG, TID
  33. PROTONIX [Concomitant]
     Dosage: UNK
  34. VITAMIN D [Concomitant]
     Dosage: UNK
  35. ENBREL [Suspect]
     Indication: RHEUMATOID ARTHRITIS
     Dosage: 50 MG, QWK
     Route: 058
     Dates: start: 20080915
  36. SIMVASTATIN [Concomitant]
     Dosage: UNK
  37. DEXILANT [Concomitant]
     Dosage: UNK
  38. AMBIEN [Concomitant]
     Dosage: UNK
  39. TORADOL [Concomitant]
     Dosage: UNK
  40. AZATHIOPRINE [Concomitant]
     Dosage: UNK
  41. ISORBIDE [Concomitant]
     Dosage: UNK
  42. DOVONEX [Concomitant]
     Dosage: UNK
  43. DILAUDID [Concomitant]
     Dosage: UNK
  44. CLARITIN                           /00413701/ [Concomitant]
     Dosage: UNK
  45. VITAMIN C                          /00008001/ [Concomitant]
     Dosage: UNK

REACTIONS (35)
  - MALAISE [None]
  - ANTI-SS-A ANTIBODY POSITIVE [None]
  - INTERVERTEBRAL DISC DEGENERATION [None]
  - GASTROOESOPHAGEAL REFLUX DISEASE [None]
  - EXOSTOSIS [None]
  - IRRITABLE BOWEL SYNDROME [None]
  - RED BLOOD CELL SEDIMENTATION RATE INCREASED [None]
  - INJECTION SITE PAIN [None]
  - OSTEOARTHRITIS [None]
  - PYURIA [None]
  - ADRENAL INSUFFICIENCY [None]
  - HYPOTHYROIDISM [None]
  - ECHOCARDIOGRAM ABNORMAL [None]
  - LIVER FUNCTION TEST ABNORMAL [None]
  - CLOSTRIDIAL INFECTION [None]
  - CORONARY ARTERY DISEASE [None]
  - DYSLIPIDAEMIA [None]
  - PNEUMONITIS [None]
  - FIBROMYALGIA [None]
  - MIGRAINE [None]
  - HYPERTENSION [None]
  - BLOOD TESTOSTERONE DECREASED [None]
  - LEUKOPENIA [None]
  - GASTRITIS [None]
  - OEDEMA PERIPHERAL [None]
  - MUSCULOSKELETAL PAIN [None]
  - ASTHMA [None]
  - BLOOD CORTISOL DECREASED [None]
  - ANTINUCLEAR ANTIBODY POSITIVE [None]
  - MYOCARDIAL INFARCTION [None]
  - INFLUENZA LIKE ILLNESS [None]
  - SJOGREN'S SYNDROME [None]
  - SERONEGATIVE ARTHRITIS [None]
  - NECROBIOSIS LIPOIDICA DIABETICORUM [None]
  - PEPTIC ULCER [None]
